FAERS Safety Report 8082168-1 (Version None)
Quarter: 2012Q1

REPORT INFORMATION
  Report Type: 
  Country: None (occurrence: None)
  Receive Date: 20120127
  Receipt Date: 20110128
  Transmission Date: 20120608
  Serious: No
  Sender: FDA-Public Use
  Company Number: US-ABBOTT-11P-163-0701939-00

PATIENT
  Sex: Female
  Weight: 79.904 kg

DRUGS (6)
  1. METHOTREXATE [Concomitant]
     Indication: RHEUMATOID ARTHRITIS
     Dates: start: 20110101
  2. PREDNISONE TAB [Concomitant]
     Indication: MYASTHENIA GRAVIS
  3. CALCIUM [Concomitant]
     Indication: MINERAL SUPPLEMENTATION
  4. MULTI-VITAMINS [Concomitant]
     Indication: VITAMIN SUPPLEMENTATION
  5. HUMIRA [Suspect]
     Indication: RHEUMATOID ARTHRITIS
     Dates: start: 20100101
  6. DIOVAN [Concomitant]
     Indication: HYPERTENSION

REACTIONS (4)
  - BREATH SOUNDS ABNORMAL [None]
  - COUGH [None]
  - SINUSITIS [None]
  - CHEST PAIN [None]
